FAERS Safety Report 14366157 (Version 1)
Quarter: 2018Q1

REPORT INFORMATION
  Report Type: Spontaneous
  Country: TR (occurrence: TR)
  Receive Date: 20180109
  Receipt Date: 20180109
  Transmission Date: 20180509
  Serious: Yes (Life-Threatening)
  Sender: FDA-Public Use
  Company Number: TR-ROCHE-2051041

PATIENT
  Age: 68 Year
  Sex: Female
  Weight: 80 kg

DRUGS (1)
  1. MABTHERA [Suspect]
     Active Substance: RITUXIMAB
     Indication: ACUTE LYMPHOCYTIC LEUKAEMIA
     Route: 042
     Dates: start: 20171209, end: 20171209

REACTIONS (4)
  - Hyperthermia [Recovering/Resolving]
  - Tachypnoea [Not Recovered/Not Resolved]
  - Respiratory distress [Not Recovered/Not Resolved]
  - Tachycardia [Recovering/Resolving]

NARRATIVE: CASE EVENT DATE: 20171209
